FAERS Safety Report 23448384 (Version 2)
Quarter: 2024Q1

REPORT INFORMATION
  Report Type: Spontaneous
  Country: US (occurrence: US)
  Receive Date: 20240127
  Receipt Date: 20240131
  Transmission Date: 20240410
  Serious: No
  Sender: FDA-Public Use
  Company Number: US-ABBVIE-5605651

PATIENT
  Age: 26 Year
  Sex: Female

DRUGS (2)
  1. LILETTA [Suspect]
     Active Substance: LEVONORGESTREL
     Indication: Product used for unknown indication
     Dosage: TIME INTERVAL: AS NECESSARY: FROM STRENGTH WAS 52 MG
     Route: 015
     Dates: start: 20230926, end: 20240118
  2. LILETTA [Suspect]
     Active Substance: LEVONORGESTREL
     Dosage: TIME INTERVAL: AS NECESSARY: FROM STRENGTH WAS 52 MG
     Route: 015

REACTIONS (2)
  - Device expulsion [Unknown]
  - Device issue [Unknown]

NARRATIVE: CASE EVENT DATE: 20240118
